FAERS Safety Report 19196788 (Version 18)
Quarter: 2022Q4

REPORT INFORMATION
  Report Type: Report from Study
  Country: US (occurrence: US)
  Receive Date: 20210429
  Receipt Date: 20221226
  Transmission Date: 20230113
  Serious: Yes (Hospitalization)
  Sender: FDA-Public Use
  Company Number: US-BOEHRINGERINGELHEIM-2021-BI-090603

PATIENT
  Age: 80 Year
  Sex: Male

DRUGS (2)
  1. OFEV [Suspect]
     Active Substance: NINTEDANIB
     Indication: Idiopathic pulmonary fibrosis
     Route: 048
     Dates: start: 20190905, end: 202112
  2. OFEV [Suspect]
     Active Substance: NINTEDANIB
     Route: 048
     Dates: start: 202208

REACTIONS (32)
  - Heart valve replacement [Unknown]
  - Urinary tract infection [Unknown]
  - Urinary bladder haemorrhage [Unknown]
  - Catheter site haemorrhage [Unknown]
  - Penile haemorrhage [Unknown]
  - Post procedural haemorrhage [Unknown]
  - Diarrhoea [Recovered/Resolved]
  - Diarrhoea [Not Recovered/Not Resolved]
  - Decreased appetite [Unknown]
  - Diarrhoea [Recovered/Resolved]
  - Weight decreased [Recovering/Resolving]
  - Clostridium difficile infection [Recovered/Resolved]
  - Dizziness [Unknown]
  - Hypoxia [Unknown]
  - Productive cough [Unknown]
  - Abdominal pain upper [Unknown]
  - Gastrointestinal hypomotility [Unknown]
  - Nausea [Unknown]
  - Fatigue [Unknown]
  - Faeces soft [Unknown]
  - Constipation [Unknown]
  - Dehydration [Unknown]
  - Dry mouth [Unknown]
  - General physical health deterioration [Unknown]
  - Oxygen saturation decreased [Unknown]
  - Flatulence [Unknown]
  - Asthenia [Unknown]
  - Muscle atrophy [Unknown]
  - Gait disturbance [Unknown]
  - COVID-19 [Recovered/Resolved]
  - Faeces hard [Unknown]
  - Exercise tolerance decreased [Unknown]

NARRATIVE: CASE EVENT DATE: 20210101
